FAERS Safety Report 6390038-X (Version None)
Quarter: 2009Q4

REPORT INFORMATION
  Report Type: 
  Country: None (occurrence: None)
  Receive Date: 20091003
  Receipt Date: 20090917
  Transmission Date: 20100525
  Serious: No
  Sender: FDA-Public Use
  Company Number: DSU-2009-01997

PATIENT
  Age: 71 Year
  Sex: Female
  Weight: 68.0396 kg

DRUGS (9)
  1. WELCHOL [Suspect]
     Indication: DIABETES MELLITUS
     Dosage: 2500 MG (1250 MG, BID), PER ORAL
     Route: 048
     Dates: start: 20090901
  2. SYNTHROID (LEVOTHYROXINE SODIUM) (125 MICROGRAM) (LEVOTHYROXINE SODIUM [Concomitant]
  3. JANUVIA (SITAGLIPTIN) (50 MILLIGRAM) [Concomitant]
  4. QUINAPRIL (QUINAPRIL) (40 MILLIGRAM) (QUINAPRIL) [Concomitant]
  5. HYDROCHLOROTHIAZIDE (HYDROCHLOROTHIAZIDE) (12.5 MILLIGRAM) (HYDROCHLOR [Concomitant]
  6. GLIMEPIRIDE (GLIMEPIRIDE) (4 MILLIGRAM) (GLIMEPIRIDE) [Concomitant]
  7. ISRADIPINE (ISRADIPINE) (5 MILLIGRAM) (ISRADIPINE) [Concomitant]
  8. VYTORIN (EZETIMIBE AND SIMVASTATIN) [Concomitant]
  9. ASPIRIN (ACETYLSALICYLIC ACID) (325 MILLIGRAM) (ACETYLSALICYLIC ACID) [Concomitant]

REACTIONS (4)
  - CHOKING [None]
  - DRUG ADMINISTRATION ERROR [None]
  - DYSPHAGIA [None]
  - WRONG TECHNIQUE IN DRUG USAGE PROCESS [None]
